FAERS Safety Report 8855093 (Version 1)
Quarter: 2012Q4

REPORT INFORMATION
  Report Type: 
  Country: DE (occurrence: DE)
  Receive Date: 20121023
  Receipt Date: 20121023
  Transmission Date: 20130627
  Serious: Yes (Other)
  Sender: FDA-Public Use
  Company Number: DE-TEVA-364512GER

PATIENT
  Sex: Female

DRUGS (1)
  1. COPAXONE [Suspect]
     Dates: start: 201203, end: 201207

REACTIONS (5)
  - Multiple sclerosis relapse [Recovered/Resolved]
  - Blindness [Recovered/Resolved]
  - Deafness [Recovered/Resolved]
  - Sensory loss [Recovered/Resolved]
  - Weight increased [Recovered/Resolved]
